FAERS Safety Report 23073900 (Version 1)
Quarter: 2023Q4

REPORT INFORMATION
  Report Type: Spontaneous
  Country: US (occurrence: None)
  Receive Date: 20231016
  Receipt Date: 20231016
  Transmission Date: 20240110
  Serious: Yes (Other)
  Sender: FDA-Public Use
  Company Number: None

PATIENT
  Sex: Female

DRUGS (44)
  1. HUMIRA [Suspect]
     Active Substance: ADALIMUMAB
     Indication: Psoriatic arthropathy
     Dosage: OTHER QUANTITY : 40MG/0.ML;?FREQUENCY : EVERY OTHER WEEK;?
     Route: 058
     Dates: start: 20200226
  2. ADVAIR DISKU AER [Concomitant]
  3. ALBUTEROL AER HFA [Concomitant]
  4. ALBUTEROL [Concomitant]
     Active Substance: ALBUTEROL
  5. AZELASTINE SPR [Concomitant]
  6. BUDESONIDE TAB ER [Concomitant]
  7. BUPROPION TAB [Concomitant]
  8. BUPROPN HCL TAB [Concomitant]
  9. BUPROPN HCL TAB [Concomitant]
  10. BUSPIRONE [Concomitant]
     Active Substance: BUSPIRONE HYDROCHLORIDE
  11. CALCIPOTREN CRE [Concomitant]
  12. CLOTRIMAZOLE TRO [Concomitant]
  13. CODEINE/GG SOL [Concomitant]
  14. CYCLOBENZAPRINE [Concomitant]
     Active Substance: CYCLOBENZAPRINE
  15. DIAZEPAM [Concomitant]
     Active Substance: DIAZEPAM
  16. DICYCLOMINE [Concomitant]
     Active Substance: DICYCLOMINE HYDROCHLORIDE
  17. ESCITALOPRAM [Concomitant]
     Active Substance: ESCITALOPRAM OXALATE
  18. ESCITALOPRAM TAB 20MG [Concomitant]
  19. FAMOTIDINE [Concomitant]
     Active Substance: FAMOTIDINE
  20. GABAPENTIN [Concomitant]
     Active Substance: GABAPENTIN
  21. FLUCONAZOLE [Concomitant]
     Active Substance: FLUCONAZOLE
  22. FLUOCINONIDE CRE [Concomitant]
  23. FUROSEMIDE [Concomitant]
     Active Substance: FUROSEMIDE
  24. FUROSEMIDE TAB 40MG [Concomitant]
  25. GABAPENTIN CAP 100MG [Concomitant]
  26. GABAPENTIN [Concomitant]
     Active Substance: GABAPENTIN
  27. GABAPENTIN CAP 600MG [Concomitant]
  28. HYOSCYAMINE [Concomitant]
     Active Substance: HYOSCYAMINE
  29. IRBESARTAN [Concomitant]
     Active Substance: IRBESARTAN
  30. METFORMIN HYDROCHLORIDE [Concomitant]
     Active Substance: METFORMIN HYDROCHLORIDE
  31. METHOTREXATE [Concomitant]
     Active Substance: METHOTREXATE
  32. METHYLPREDNISOLONE [Concomitant]
     Active Substance: METHYLPREDNISOLONE
  33. METOPROL SUC TAB ER [Concomitant]
  34. MIRTAZAPINE [Concomitant]
     Active Substance: MIRTAZAPINE
  35. MIRTAZAPINE TAB [Concomitant]
  36. MONTELUKAST [Concomitant]
     Active Substance: MONTELUKAST SODIUM
  37. NICOTINE TD DIS [Concomitant]
  38. OMEPRA/BICAR [Concomitant]
  39. OMEPRAZOLE [Concomitant]
     Active Substance: OMEPRAZOLE
  40. PAROXETINE TAB 20MG [Concomitant]
  41. PAROXETINE TAB 40MG [Concomitant]
  42. SPIRIVA AER [Concomitant]
  43. SUCRALFATE [Concomitant]
     Active Substance: SUCRALFATE
  44. TRIAMCINOLON CRE [Concomitant]

REACTIONS (4)
  - Intentional dose omission [None]
  - Drug ineffective [None]
  - Pain [None]
  - Loss of personal independence in daily activities [None]
